FAERS Safety Report 6747621-9 (Version None)
Quarter: 2010Q2

REPORT INFORMATION
  Report Type: 
  Country: None (occurrence: None)
  Receive Date: 20100528
  Receipt Date: 20100521
  Transmission Date: 20101027
  Serious: Yes (Other)
  Sender: FDA-Public Use
  Company Number: PHHY2010US33562

PATIENT
  Sex: Female

DRUGS (1)
  1. VIVELLE-DOT [Suspect]
     Indication: HOT FLUSH
     Dosage: 0.0375 MG EVERY 5 DAYS
     Route: 062
     Dates: start: 20100210, end: 20100310

REACTIONS (3)
  - DERMATITIS [None]
  - ERYTHEMA [None]
  - RASH [None]
